FAERS Safety Report 10923645 (Version 2)
Quarter: 2015Q2

REPORT INFORMATION
  Report Type: Spontaneous
  Country: US (occurrence: US)
  Receive Date: 20150318
  Receipt Date: 20150526
  Transmission Date: 20150821
  Serious: Yes (Other)
  Sender: FDA-Public Use
  Company Number: US-JNJFOC-20150214510

PATIENT
  Sex: Male

DRUGS (1)
  1. HALDOL [Suspect]
     Active Substance: HALOPERIDOL
     Indication: PRODUCT USED FOR UNKNOWN INDICATION
     Route: 030
     Dates: end: 2014

REACTIONS (15)
  - Electrocardiogram QT prolonged [Unknown]
  - Eye movement disorder [Not Recovered/Not Resolved]
  - Myalgia [Not Recovered/Not Resolved]
  - Frustration [Not Recovered/Not Resolved]
  - Hallucination, auditory [Not Recovered/Not Resolved]
  - Stomatitis [Unknown]
  - Adverse event [Unknown]
  - Feeling abnormal [Unknown]
  - Toothache [Unknown]
  - Oropharyngeal pain [Unknown]
  - Intervertebral disc disorder [Unknown]
  - Ligament disorder [Unknown]
  - Blood pressure increased [Unknown]
  - Incoherent [Not Recovered/Not Resolved]
  - Tongue movement disturbance [Not Recovered/Not Resolved]
